FAERS Safety Report 4370825-X (Version None)
Quarter: 2004Q2

REPORT INFORMATION
  Report Type: 
  Country: None (occurrence: None)
  Receive Date: 20040601
  Receipt Date: 20040518
  Transmission Date: 20050107
  Serious: Yes (Death, Life-Threatening, Hospitalization)
  Sender: FDA-Public Use
  Company Number: 167-20785-04050166

PATIENT
  Age: 61 Year
  Sex: Female

DRUGS (8)
  1. THALIDOMIDE - PHARMION (THALIDOMIDE) (CAPSULES) [Suspect]
     Indication: NON-SMALL CELL LUNG CANCER
     Dosage: 100 MG, QD, ORAL
     Route: 048
     Dates: start: 20040312, end: 20040501
  2. GEMCITABINE (GEMCITABINE) (UNKNOWN) [Suspect]
     Indication: NON-SMALL CELL LUNG CANCER
     Dosage: 1800 MG, INTRAVENOUS
     Route: 042
     Dates: start: 20040422, end: 20040422
  3. CARBOPLATIN (CARBOPLATIN) (UNKNOWN) [Suspect]
     Indication: NON-SMALL CELL LUNG CANCER
     Dosage: 350 MG, INTRAVENOUS
     Route: 042
     Dates: start: 20040422, end: 20040422
  4. DOMPERIDONE (DOMPERIDONE) [Concomitant]
  5. NST [Concomitant]
  6. LANZOPRAZOLE [Concomitant]
  7. ASPIRIN [Concomitant]
  8. MILPAR (MAG-LAX) [Concomitant]

REACTIONS (7)
  - ALANINE AMINOTRANSFERASE INCREASED [None]
  - BLOOD ALKALINE PHOSPHATASE INCREASED [None]
  - BLOOD UREA DECREASED [None]
  - C-REACTIVE PROTEIN INCREASED [None]
  - HAEMOGLOBIN DECREASED [None]
  - PULMONARY ARTERY THROMBOSIS [None]
  - VOMITING [None]
